FAERS Safety Report 4518910-3 (Version None)
Quarter: 2004Q4

REPORT INFORMATION
  Report Type: 
  Country: None (occurrence: None)
  Receive Date: 20041201
  Receipt Date: 20041117
  Transmission Date: 20050328
  Serious: Yes (Hospitalization)
  Sender: FDA-Public Use
  Company Number: JP-2004-031448

PATIENT
  Age: 19 Year
  Sex: Male
  Weight: 58 kg

DRUGS (15)
  1. FLUDARA [Suspect]
     Indication: STEM CELL TRANSPLANT
     Dosage: 54 MG, 1X/DAY, INTRAVENOUS
     Route: 042
     Dates: start: 20040521, end: 20040525
  2. THIOTEPA [Concomitant]
  3. ANTITHYMOCYTE IMMUNOGLOBULIN (RABBIT) [Concomitant]
  4. ............ [Concomitant]
  5. SANDIMMUNE [Concomitant]
  6. NEORAL [Concomitant]
  7. DIFLUCAN (FLUCONAZOLE) CAPSULE [Concomitant]
  8. ZANTAC [Concomitant]
  9. BAKTAR TABLET [Concomitant]
  10. CARBENIN (BETAMIPRON, PANIPENEM) [Concomitant]
  11. CRAVIT (LEVOFLOXACIN) TABLET [Concomitant]
  12. ISODINE (PROVIDONE-IODINE) [Concomitant]
  13. MUCOSTA (REBAMIPIDE) TABLET [Concomitant]
  14. MUCODYNE (CARBOCISTEINE) TABLET [Concomitant]
  15. VEEN-F [Concomitant]

REACTIONS (18)
  - BLOOD BILIRUBIN INCREASED [None]
  - COMPLICATIONS OF BONE MARROW TRANSPLANT [None]
  - DECREASED IMMUNE RESPONSIVENESS [None]
  - DRUG EFFECT DECREASED [None]
  - EATING DISORDER [None]
  - GENERALISED ERYTHEMA [None]
  - GRAFT VERSUS HOST DISEASE [None]
  - HAEMOGLOBIN DECREASED [None]
  - HEPAPLASTIN DECREASED [None]
  - HEPATITIS ACUTE [None]
  - HEPATITIS VIRAL [None]
  - LARYNGOPHARYNGITIS [None]
  - LYMPHOCYTE MORPHOLOGY ABNORMAL [None]
  - PLATELET COUNT DECREASED [None]
  - PYREXIA [None]
  - RED BLOOD CELL COUNT DECREASED [None]
  - UPPER RESPIRATORY TRACT INFLAMMATION [None]
  - WHITE BLOOD CELL COUNT DECREASED [None]
